FAERS Safety Report 15087780 (Version 3)
Quarter: 2018Q3

REPORT INFORMATION
  Report Type: Report from Study
  Country: None (occurrence: GR)
  Receive Date: 20180629
  Receipt Date: 20180707
  Transmission Date: 20181010
  Serious: Yes (Death, Hospitalization)
  Sender: FDA-Public Use
  Company Number: GR-ABBVIE-18K-066-2400810-00

PATIENT
  Age: 57 Year
  Sex: Female
  Weight: 67 kg

DRUGS (1)
  1. DUODOPA [Suspect]
     Active Substance: CARBIDOPA\LEVODOPA
     Indication: PARKINSON^S DISEASE
     Dosage: MORNING DOSE:4.0ML; CONTINUOUS RATE:2.5ML/H; EXTRA DOSE:1.0ML
     Route: 050
     Dates: start: 20160322, end: 20180623

REACTIONS (12)
  - Oesophageal oedema [Not Recovered/Not Resolved]
  - Pleural effusion [Not Recovered/Not Resolved]
  - Discoloured vomit [Not Recovered/Not Resolved]
  - Gastrointestinal oedema [Not Recovered/Not Resolved]
  - Acute kidney injury [Not Recovered/Not Resolved]
  - Ileus [Fatal]
  - Sepsis [Fatal]
  - Bezoar [Recovered/Resolved]
  - Gastrointestinal necrosis [Fatal]
  - Respiratory tract infection [Not Recovered/Not Resolved]
  - Duodenal obstruction [Recovered/Resolved]
  - Gastric haemorrhage [Not Recovered/Not Resolved]

NARRATIVE: CASE EVENT DATE: 20180624
